FAERS Safety Report 7287129-8 (Version None)
Quarter: 2011Q1

REPORT INFORMATION
  Report Type: 
  Country: None (occurrence: None)
  Receive Date: 20110131
  Receipt Date: 20110117
  Transmission Date: 20110831
  Serious: Yes (Life-Threatening, Hospitalization)
  Sender: FDA-Public Use
  Company Number: B0695774A

PATIENT
  Age: 52 Year
  Sex: Male

DRUGS (7)
  1. VENTOLIN [Suspect]
  2. ERYTHROPOIETIN (FORMULATION UNKNOWN0 (ERYTHROPOIETIN) [Suspect]
  3. PARACETAMOL (FORMULATION UNKNOWN) (ACETAMINOPHEN) [Suspect]
  4. HEMODIALYSIS [Concomitant]
  5. OXYCODONE (FORMULATION UNKNOWN) (OXYCODONE) [Suspect]
  6. IBUPROFEN [Suspect]
  7. CALCIUM ACETATE [Suspect]

REACTIONS (15)
  - BLOOD CREATININE INCREASED [None]
  - BLOOD PH DECREASED [None]
  - DYSPNOEA [None]
  - CHEST PAIN [None]
  - BLOOD UREA DECREASED [None]
  - QUADRIPLEGIA [None]
  - SENSATION OF HEAVINESS [None]
  - MUSCULOSKELETAL PAIN [None]
  - VITAL CAPACITY DECREASED [None]
  - ELECTROCARDIOGRAM QRS COMPLEX PROLONGED [None]
  - BLOOD CREATINE PHOSPHOKINASE INCREASED [None]
  - ELECTROCARDIOGRAM P WAVE ABNORMAL [None]
  - HYPERKALAEMIA [None]
  - BLOOD SODIUM DECREASED [None]
  - PAIN IN EXTREMITY [None]
